FAERS Safety Report 7061091-5 (Version None)
Quarter: 2010Q4

REPORT INFORMATION
  Report Type: 
  Country: None (occurrence: None)
  Receive Date: 20101026
  Receipt Date: 20101015
  Transmission Date: 20110411
  Serious: Yes (Hospitalization, Other)
  Sender: FDA-Public Use
  Company Number: US-JNJFOC-20100905828

PATIENT
  Sex: Female

DRUGS (8)
  1. REMICADE [Suspect]
     Indication: PSORIASIS
     Route: 042
  2. STELARA [Suspect]
     Indication: PSORIASIS
     Route: 058
  3. STELARA [Suspect]
     Route: 058
  4. STELARA [Suspect]
     Route: 058
  5. METHOTREXATE [Concomitant]
     Indication: PSORIASIS
     Route: 048
  6. SORIATANE [Concomitant]
     Indication: PSORIASIS
     Route: 048
  7. ENBREL [Concomitant]
     Indication: PSORIASIS
     Route: 058
  8. HUMIRA [Concomitant]
     Indication: PSORIASIS

REACTIONS (1)
  - THROMBOSIS [None]
